FAERS Safety Report 8180471-8 (Version None)
Quarter: 2012Q1

REPORT INFORMATION
  Report Type: 
  Country: None (occurrence: None)
  Receive Date: 20120302
  Receipt Date: 20120227
  Transmission Date: 20120608
  Serious: Yes (Hospitalization)
  Sender: FDA-Public Use
  Company Number: US-ABBOTT-12P-163-0909298-00

PATIENT
  Sex: Female
  Weight: 82.628 kg

DRUGS (3)
  1. GLIMEPIRIDE [Concomitant]
     Indication: BLOOD GLUCOSE INCREASED
  2. METHOTREXATE [Suspect]
     Indication: RHEUMATOID ARTHRITIS
  3. HUMIRA [Suspect]
     Indication: RHEUMATOID ARTHRITIS

REACTIONS (4)
  - AGGRESSION [None]
  - ADRENAL DISORDER [None]
  - PYREXIA [None]
  - FEELING ABNORMAL [None]
